FAERS Safety Report 20303477 (Version 3)
Quarter: 2022Q1

REPORT INFORMATION
  Report Type: Report from Study
  Country: US (occurrence: US)
  Receive Date: 20220106
  Receipt Date: 20220323
  Transmission Date: 20220423
  Serious: Yes (Other)
  Sender: FDA-Public Use
  Company Number: US-BIOVITRUM-2022US00104

PATIENT
  Sex: Female

DRUGS (1)
  1. KINERET [Suspect]
     Active Substance: ANAKINRA
     Indication: Rheumatoid arthritis
     Route: 058
     Dates: start: 20211211

REACTIONS (6)
  - Rheumatoid arthritis [Unknown]
  - Respiratory tract infection [Unknown]
  - Joint swelling [Unknown]
  - Immune system disorder [Unknown]
  - Adverse drug reaction [Unknown]
  - Product dose omission issue [Unknown]
